FAERS Safety Report 15709229 (Version 1)
Quarter: 2018Q4

REPORT INFORMATION
  Report Type: Spontaneous
  Country: US (occurrence: US)
  Receive Date: 20181211
  Receipt Date: 20181211
  Transmission Date: 20190205
  Serious: Yes (Other)
  Sender: FDA-Public Use
  Company Number: US-BAYER-2018-229432

PATIENT
  Sex: Female

DRUGS (1)
  1. SKYLA [Suspect]
     Active Substance: LEVONORGESTREL
     Dosage: 14 MCG/24HR, CONT
     Route: 015
     Dates: start: 2016

REACTIONS (4)
  - Genital haemorrhage [Not Recovered/Not Resolved]
  - Menstruation irregular [None]
  - Device expulsion [None]
  - Vaginal haemorrhage [None]

NARRATIVE: CASE EVENT DATE: 20181204
